FAERS Safety Report 5875018-2 (Version None)
Quarter: 2008Q3

REPORT INFORMATION
  Report Type: 
  Country: None (occurrence: None)
  Receive Date: 20080908
  Receipt Date: 20080908
  Transmission Date: 20090109
  Serious: Yes (Hospitalization)
  Sender: FDA-Public Use
  Company Number: None

PATIENT
  Sex: Female
  Weight: 81.6475 kg

DRUGS (1)
  1. SULFAMETHOXAZOLE AND TRIMETHOPRIM [Suspect]
     Indication: URINARY TRACT INFECTION
     Dosage: 1 TABLET TWICE A DAY
     Dates: start: 20080812, end: 20080819

REACTIONS (8)
  - FACIAL PAIN [None]
  - INFLUENZA [None]
  - INSOMNIA [None]
  - MUSCULOSKELETAL PAIN [None]
  - NECK PAIN [None]
  - PAIN IN JAW [None]
  - SENSITIVITY OF TEETH [None]
  - SOMNOLENCE [None]
